FAERS Safety Report 16465559 (Version 1)
Quarter: 2019Q2

REPORT INFORMATION
  Report Type: Spontaneous
  Country: US (occurrence: US)
  Receive Date: 20190621
  Receipt Date: 20190621
  Transmission Date: 20190711
  Serious: No
  Sender: FDA-Public Use
  Company Number: US-EGALET US INC-US-2019EGA000047

PATIENT

DRUGS (4)
  1. SPRIX [Suspect]
     Active Substance: KETOROLAC TROMETHAMINE
     Indication: MIGRAINE
     Dosage: ONE SPRAY IN THE RIGHT NOSTRIL EVERY 6 HOURS
     Route: 045
     Dates: start: 201811, end: 201812
  2. TOPIRAMATE. [Concomitant]
     Active Substance: TOPIRAMATE
     Indication: MIGRAINE
     Dosage: UNK
  3. SPRIX [Suspect]
     Active Substance: KETOROLAC TROMETHAMINE
     Indication: NECK PAIN
     Dosage: ONE SPRAY IN RIGHT NOSTRIL EVERY 6 HOURS NOR MORE THAN 5 DAYS
     Dates: start: 201901
  4. SPRIX [Suspect]
     Active Substance: KETOROLAC TROMETHAMINE
     Indication: BACK PAIN
     Dosage: ONE SPRAY IN RIGHT NOSTRIL EVERY 6 HURS NO MORE THAN 5 DAYS
     Route: 045
     Dates: start: 201812, end: 201901

REACTIONS (4)
  - Gait disturbance [Unknown]
  - Pain in extremity [Unknown]
  - Wrong technique in product usage process [Unknown]
  - Drug ineffective [Unknown]

NARRATIVE: CASE EVENT DATE: 20190122
